FAERS Safety Report 7828584-1 (Version None)
Quarter: 2011Q4

REPORT INFORMATION
  Report Type: 
  Country: None (occurrence: None)
  Receive Date: 20111020
  Receipt Date: 20111020
  Transmission Date: 20120403
  Serious: No
  Sender: FDA-Public Use
  Company Number: None

PATIENT
  Age: 78 Year
  Sex: Female
  Weight: 60.781 kg

DRUGS (1)
  1. WELCHOL [Suspect]
     Indication: HYPERCHOLESTEROLAEMIA
     Dates: start: 20110415, end: 20111007

REACTIONS (2)
  - MUSCULAR WEAKNESS [None]
  - BLOOD THYROID STIMULATING HORMONE INCREASED [None]
